FAERS Safety Report 21157737 (Version 4)
Quarter: 2022Q3

REPORT INFORMATION
  Report Type: Spontaneous
  Country: US (occurrence: US)
  Receive Date: 20220801
  Receipt Date: 20220915
  Transmission Date: 20221026
  Serious: Yes (Hospitalization, Other)
  Sender: FDA-Public Use
  Company Number: US-PFIZER INC-202201014924

PATIENT
  Age: 64 Year
  Sex: Female
  Weight: 124.26 kg

DRUGS (2)
  1. XELJANZ XR [Suspect]
     Active Substance: TOFACITINIB CITRATE
     Indication: Rheumatoid arthritis
     Dosage: 11 MG, DAILY (TAKES 1 TABLET DAILY WITH DINNER)
     Dates: start: 20190625
  2. METHOTREXATE [Concomitant]
     Active Substance: METHOTREXATE
     Dosage: 20 MG, WEEKLY, 2.5 MG 8 PILLS ONCE PER WEEK
     Dates: start: 1990

REACTIONS (7)
  - Pulmonary embolism [Recovering/Resolving]
  - Lymphoedema [Unknown]
  - Disease recurrence [Unknown]
  - Vein disorder [Unknown]
  - Arterial disorder [Unknown]
  - Inflammation [Unknown]
  - Peripheral swelling [Not Recovered/Not Resolved]

NARRATIVE: CASE EVENT DATE: 20210101
